FAERS Safety Report 4864011-4 (Version None)
Quarter: 2005Q4

REPORT INFORMATION
  Report Type: 
  Country: None (occurrence: None)
  Receive Date: 20051219
  Receipt Date: 20051201
  Transmission Date: 20060501
  Serious: Yes (Life-Threatening, Hospitalization)
  Sender: FDA-Public Use
  Company Number: 220287

PATIENT
  Age: 71 Year
  Sex: Male

DRUGS (4)
  1. AVASTIN [Suspect]
     Indication: RENAL CELL CARCINOMA STAGE UNSPECIFIED
     Dosage: 10 MG/KG, Q2W, INTRAVENOUS
     Route: 042
     Dates: start: 20040920, end: 20051017
  2. INTERFERON ALFA-2B(INTERFERON ALFA-2B) [Suspect]
     Indication: RENAL CELL CARCINOMA STAGE UNSPECIFIED
     Dosage: 9 MIU, 3/WEEK, SUBCUTANEOUS
     Route: 058
     Dates: start: 20040920, end: 20051017
  3. FILGRASTIM (FILGRASTIM) [Suspect]
     Dosage: SUBCUTANEOUS
     Route: 058
  4. LIPIDS (INTRAVENOUS FAT EMULSION) [Suspect]

REACTIONS (8)
  - DEHYDRATION [None]
  - DIARRHOEA [None]
  - ELECTROLYTE IMBALANCE [None]
  - HYPOKALAEMIA [None]
  - LUNG INFECTION [None]
  - PNEUMONIA ASPIRATION [None]
  - REFUSAL OF TREATMENT BY RELATIVE [None]
  - UNRESPONSIVE TO VERBAL STIMULI [None]
